FAERS Safety Report 6386051-9 (Version None)
Quarter: 2009Q4

REPORT INFORMATION
  Report Type: 
  Country: None (occurrence: None)
  Receive Date: 20091002
  Receipt Date: 20081107
  Transmission Date: 20100525
  Serious: No
  Sender: FDA-Public Use
  Company Number: US-ASTRAZENECA-2008UW24919

PATIENT
  Age: 78 Year
  Sex: Female
  Weight: 59 kg

DRUGS (8)
  1. ARIMIDEX [Suspect]
     Indication: BREAST CANCER FEMALE
     Route: 048
     Dates: start: 20071201
  2. RHINOCORT [Concomitant]
     Route: 045
  3. ASTELIN [Concomitant]
  4. VITAMINS [Concomitant]
  5. FOLIC ACID [Concomitant]
  6. CALCIUM [Concomitant]
  7. OMEGA-3 ACID [Concomitant]
  8. SYNTHROID [Concomitant]

REACTIONS (3)
  - BACK PAIN [None]
  - PAIN [None]
  - RENAL IMPAIRMENT [None]
